FAERS Safety Report 9971451 (Version 2)
Quarter: 2014Q1

REPORT INFORMATION
  Report Type: Report from Study
  Country: US (occurrence: US)
  Receive Date: 20140306
  Receipt Date: 20140306
  Transmission Date: 20141002
  Serious: No
  Sender: FDA-Public Use
  Company Number: US-ABBVIE-13P-163-1123486-00

PATIENT
  Age: 60 Year
  Sex: Male

DRUGS (7)
  1. HUMIRA [Suspect]
     Indication: CROHN^S DISEASE
     Route: 058
     Dates: start: 201306
  2. METHOTREXATE [Suspect]
     Indication: CROHN^S DISEASE
  3. BENICAR [Concomitant]
     Indication: HYPERTENSION
  4. CITRA K LIQUID [Concomitant]
     Indication: NEPHROLITHIASIS
     Dosage: WITH MEALS
  5. VITAMIN D [Concomitant]
     Indication: VITAMIN SUPPLEMENTATION
  6. TUMS [Concomitant]
     Indication: PRODUCT USED FOR UNKNOWN INDICATION
     Dosage: 1 W/ BREAKFAST, 1 W/ LUNCH, 2 W/ DINNER
  7. OMEPRAZOLE [Concomitant]
     Indication: ULCER

REACTIONS (3)
  - Dizziness [Not Recovered/Not Resolved]
  - Pyrexia [Not Recovered/Not Resolved]
  - Pyrexia [Recovered/Resolved]
